FAERS Safety Report 10792479 (Version 2)
Quarter: 2015Q3

REPORT INFORMATION
  Report Type: Report from Study
  Country: DE (occurrence: DE)
  Receive Date: 20150213
  Receipt Date: 20150701
  Transmission Date: 20151125
  Serious: Yes (Death, Hospitalization)
  Sender: FDA-Public Use
  Company Number: DE-ABBVIE-15P-062-1344395-00

PATIENT
  Age: 75 Year
  Sex: Male

DRUGS (1)
  1. LEVODOPA/CARBIDOPA [Suspect]
     Active Substance: CARBIDOPA\LEVODOPA
     Indication: PARKINSON^S DISEASE
     Dosage: MD: 3.5 ML; CRD: 2.7 ML/H; CRN: 2.7 ML/H; ED: 1.0 ML
     Route: 050
     Dates: start: 20061120

REACTIONS (3)
  - Pneumonia [Fatal]
  - Pulmonary oedema [Fatal]
  - Pneumonia [Not Recovered/Not Resolved]

NARRATIVE: CASE EVENT DATE: 20150201
